FAERS Safety Report 9193417 (Version 1)
Quarter: 2013Q1

REPORT INFORMATION
  Report Type: Spontaneous
  Country: JP (occurrence: JP)
  Receive Date: 20130327
  Receipt Date: 20130327
  Transmission Date: 20140127
  Serious: Yes (Hospitalization)
  Sender: FDA-Public Use
  Company Number: JP-PFIZER INC-2013071011

PATIENT
  Age: 70 Year
  Sex: Female

DRUGS (3)
  1. ATARAX-P [Suspect]
     Dosage: 25 MG, DAILY
     Route: 042
  2. PRAZAXA [Concomitant]
     Indication: ARRHYTHMIA
  3. BEPRIDIL [Concomitant]
     Indication: ARRHYTHMIA

REACTIONS (1)
  - Restlessness [Recovered/Resolved]
